FAERS Safety Report 5280884-8 (Version None)
Quarter: 2007Q1

REPORT INFORMATION
  Report Type: 
  Country: None (occurrence: None)
  Receive Date: 20070329
  Receipt Date: 20070319
  Transmission Date: 20070707
  Serious: Yes (Hospitalization)
  Sender: FDA-Public Use
  Company Number: DE-PFIZER INC-2007000808

PATIENT
  Sex: Male
  Weight: 43 kg

DRUGS (12)
  1. SUTENT [Suspect]
     Indication: METASTATIC RENAL CELL CARCINOMA
     Route: 048
  2. PANTOZOL [Concomitant]
     Route: 048
  3. DECORTIN [Concomitant]
  4. ALLOPURINOL [Concomitant]
  5. BISOPROLOL [Concomitant]
  6. CYNT [Concomitant]
  7. EUTHYROX [Concomitant]
  8. TRAMADOL HCL [Concomitant]
  9. NEURONTIN [Concomitant]
     Route: 048
  10. KARVEZIDE [Concomitant]
  11. PULMICORT [Concomitant]
  12. SPIRIVA [Concomitant]
     Route: 055

REACTIONS (2)
  - DIVERTICULITIS [None]
  - ILEUS PARALYTIC [None]
